FAERS Safety Report 4293638-6 (Version None)
Quarter: 2004Q1

REPORT INFORMATION
  Report Type: 
  Country: None (occurrence: None)
  Receive Date: 20040210
  Receipt Date: 20040130
  Transmission Date: 20041129
  Serious: Yes (Hospitalization, Other)
  Sender: FDA-Public Use
  Company Number: HQWYE757730JAN04

PATIENT
  Age: 17 Month
  Sex: Male

DRUGS (5)
  1. CHILDREN'S ADVIL [Suspect]
     Indication: PYREXIA
     Dosage: 75 MG 4X PER 1 DAY ORAL
     Route: 048
     Dates: start: 20010730, end: 20010804
  2. AUGMENTIN '500' [Concomitant]
  3. ACETAMINOPHEN [Concomitant]
  4. CHIBROXINE (BENZALKONIUM CHLORIDE/NORFLOXACIN) [Concomitant]
  5. CEFPODOXIME PROXETIL [Concomitant]

REACTIONS (2)
  - CONDITION AGGRAVATED [None]
  - UPPER RESPIRATORY TRACT INFECTION [None]
